FAERS Safety Report 7529968-1 (Version None)
Quarter: 2011Q2

REPORT INFORMATION
  Report Type: 
  Country: None (occurrence: None)
  Receive Date: 20110607
  Receipt Date: 20110602
  Transmission Date: 20111010
  Serious: Yes (Life-Threatening, Other)
  Sender: FDA-Public Use
  Company Number: GB-MERCK-1106GBR00010

PATIENT
  Age: 47 Year
  Sex: Male
  Weight: 95 kg

DRUGS (1)
  1. PRINZIDE [Suspect]
     Indication: OSTEOARTHRITIS
     Route: 048
     Dates: start: 20110517, end: 20110517

REACTIONS (1)
  - SWELLING [None]
